FAERS Safety Report 5842469-1 (Version None)
Quarter: 2008Q3

REPORT INFORMATION
  Report Type: 
  Country: None (occurrence: None)
  Receive Date: 20080808
  Receipt Date: 20080515
  Transmission Date: 20090109
  Serious: Yes (Hospitalization)
  Sender: FDA-Public Use
  Company Number: 2008-00509FE

PATIENT
  Age: 18 Month
  Sex: Female

DRUGS (3)
  1. TEV-TROPIN [Suspect]
     Indication: HYPOPITUITARISM
     Dosage: 0.4 MG SC
     Route: 058
     Dates: start: 20080508, end: 20080508
  2. HYDROCORTISONE [Concomitant]
  3. LEVOTHYROXINE SODIUM [Concomitant]

REACTIONS (2)
  - UNRESPONSIVE TO STIMULI [None]
  - VIRAL INFECTION [None]
